FAERS Safety Report 25503811 (Version 1)
Quarter: 2025Q3

REPORT INFORMATION
  Report Type: Spontaneous
  Country: RU (occurrence: RU)
  Receive Date: 20250702
  Receipt Date: 20250702
  Transmission Date: 20251021
  Serious: Yes (Other)
  Sender: ROCHE
  Company Number: RU-ROCHE-10000320197

PATIENT
  Age: 39 Year
  Sex: Female

DRUGS (6)
  1. TRASTUZUMAB [Suspect]
     Active Substance: TRASTUZUMAB
     Indication: HER2 positive breast cancer
     Route: 065
     Dates: start: 202301
  2. PERTUZUMAB [Suspect]
     Active Substance: PERTUZUMAB
     Indication: HER2 positive breast cancer
     Route: 065
     Dates: start: 202301
  3. ADO-TRASTUZUMAB EMTANSINE [Suspect]
     Active Substance: ADO-TRASTUZUMAB EMTANSINE
     Indication: HER2 positive breast cancer
     Route: 065
     Dates: start: 202302
  4. DOCETAXEL [Suspect]
     Active Substance: DOCETAXEL
     Indication: HER2 positive breast cancer
     Route: 065
     Dates: start: 202301
  5. PACLITAXEL [Concomitant]
     Active Substance: PACLITAXEL
     Dates: start: 202112
  6. CARBOPLATIN [Concomitant]
     Active Substance: CARBOPLATIN
     Dates: start: 202112

REACTIONS (6)
  - Breast neoplasm [Unknown]
  - Neoplasm progression [Unknown]
  - Radiation mastitis [Unknown]
  - Metastases to lymph nodes [Unknown]
  - Disease progression [Unknown]
  - Radiation pneumonitis [Unknown]
